FAERS Safety Report 16928206 (Version 1)
Quarter: 2019Q4

REPORT INFORMATION
  Report Type: Spontaneous
  Country: US (occurrence: US)
  Receive Date: 20191017
  Receipt Date: 20191017
  Transmission Date: 20200122
  Serious: Yes (Death, Hospitalization, Other)
  Sender: FDA-Public Use
  Company Number: US-ROCHE-2412529

PATIENT
  Age: 31 Year
  Sex: Male

DRUGS (7)
  1. LEVAMISOLE [Suspect]
     Active Substance: LEVAMISOLE
     Indication: PRODUCT USED FOR UNKNOWN INDICATION
     Route: 045
  2. COCAINE [Suspect]
     Active Substance: COCAINE
     Indication: SLEEP DISORDER
     Route: 045
  3. NALOXONE [Suspect]
     Active Substance: NALOXONE
     Indication: SLEEP DISORDER
     Route: 045
  4. PHENIBUT [Suspect]
     Active Substance: DIETARY SUPPLEMENT
     Indication: SLEEP DISORDER
     Route: 045
  5. BUPRENORPHINE. [Suspect]
     Active Substance: BUPRENORPHINE
     Indication: SLEEP DISORDER
     Route: 045
  6. CLONAZEPAM. [Suspect]
     Active Substance: CLONAZEPAM
     Indication: SLEEP DISORDER
     Route: 045
  7. AMPHETAMINE [Suspect]
     Active Substance: AMPHETAMINE
     Indication: SLEEP DISORDER
     Route: 045

REACTIONS (6)
  - Endocarditis enterococcal [Unknown]
  - Unresponsive to stimuli [Unknown]
  - Drug abuse [Unknown]
  - Vasculitis [Unknown]
  - Purpura fulminans [Unknown]
  - Multiple organ dysfunction syndrome [Fatal]
